FAERS Safety Report 4717755-9 (Version None)
Quarter: 2005Q3

REPORT INFORMATION
  Report Type: 
  Country: None (occurrence: None)
  Receive Date: 20050715
  Receipt Date: 20050225
  Transmission Date: 20060218
  Serious: Yes (Hospitalization)
  Sender: FDA-Public Use
  Company Number: 2005-00394

PATIENT
  Age: 78 Year
  Sex: Female

DRUGS (4)
  1. INTEGRILIN [Suspect]
     Indication: ACUTE CORONARY SYNDROME
     Dosage: SEE IMAGE
     Route: 041
     Dates: start: 20050220, end: 20050220
  2. INTEGRILIN [Suspect]
     Indication: ACUTE CORONARY SYNDROME
     Dosage: SEE IMAGE
     Route: 041
     Dates: start: 20050220, end: 20050221
  3. ASPIRIN [Concomitant]
  4. LOVENOX [Concomitant]

REACTIONS (2)
  - ORAL MUCOSAL PETECHIAE [None]
  - THROMBOCYTOPENIA [None]
